FAERS Safety Report 23021730 (Version 1)
Quarter: 2023Q4

REPORT INFORMATION
  Report Type: Spontaneous
  Country: FR (occurrence: FR)
  Receive Date: 20231003
  Receipt Date: 20231003
  Transmission Date: 20240109
  Serious: Yes (Hospitalization, Other)
  Sender: FDA-Public Use
  Company Number: FR-OTSUKA-2023_022170

PATIENT
  Age: 0 Year
  Sex: Female
  Weight: 3.13 kg

DRUGS (1)
  1. ABILIFY MAINTENA [Suspect]
     Active Substance: ARIPIPRAZOLE
     Indication: Product used for unknown indication
     Dosage: 400 MG, QM
     Route: 064
     Dates: end: 20230702

REACTIONS (9)
  - Cyanosis neonatal [Recovered/Resolved]
  - Malaise [Recovered/Resolved]
  - Hypotonia neonatal [Recovered/Resolved]
  - Tremor neonatal [Recovered/Resolved]
  - Asthenia [Recovered/Resolved]
  - Poor feeding infant [Recovered/Resolved]
  - Eye movement disorder [Recovered/Resolved]
  - Infantile vomiting [Recovered/Resolved]
  - Foetal exposure during pregnancy [Unknown]

NARRATIVE: CASE EVENT DATE: 20230726
